FAERS Safety Report 5969357-4 (Version None)
Quarter: 2008Q4

REPORT INFORMATION
  Report Type: 
  Country: None (occurrence: None)
  Receive Date: 20081126
  Receipt Date: 20081121
  Transmission Date: 20090506
  Serious: Yes (Hospitalization)
  Sender: FDA-Public Use
  Company Number: US-GENENTECH-272190

PATIENT
  Sex: Male
  Weight: 91.156 kg

DRUGS (26)
  1. BEVACIZUMAB [Suspect]
     Indication: HEAD AND NECK CANCER
     Dosage: 15 MG/KG, UNK
     Dates: start: 20080617
  2. ERLOTINIB [Suspect]
     Indication: HEAD AND NECK CANCER
     Dosage: 100 MG, UNK
     Route: 048
  3. PACLITAXEL [Suspect]
     Indication: HEAD AND NECK CANCER
     Dosage: 200 MG/M2, UNK
  4. CARBOPLATIN [Suspect]
     Indication: HEAD AND NECK CANCER
     Dosage: 6 AUC, UNK
  5. FLUOROURACIL [Suspect]
     Indication: HEAD AND NECK CANCER
     Dosage: 200 MG/M2, UNK
  6. AVALIDE [Concomitant]
     Indication: DRUG USE FOR UNKNOWN INDICATION
  7. ANDROGEL [Concomitant]
     Indication: DRUG USE FOR UNKNOWN INDICATION
  8. TRAZODONE HCL [Concomitant]
     Indication: DRUG USE FOR UNKNOWN INDICATION
  9. CYMBALTA [Concomitant]
     Indication: DRUG USE FOR UNKNOWN INDICATION
  10. ASPIRIN [Concomitant]
     Indication: DRUG USE FOR UNKNOWN INDICATION
  11. FLONASE [Concomitant]
     Indication: DRUG USE FOR UNKNOWN INDICATION
  12. CAPHOSOL [Concomitant]
  13. ZYRTEC [Concomitant]
     Indication: DRUG USE FOR UNKNOWN INDICATION
  14. LUNESTA [Concomitant]
     Indication: DRUG USE FOR UNKNOWN INDICATION
  15. COUMADIN [Concomitant]
     Indication: DRUG USE FOR UNKNOWN INDICATION
  16. COMPAZINE [Concomitant]
     Indication: DRUG USE FOR UNKNOWN INDICATION
  17. BYSTOLIC [Concomitant]
     Indication: DRUG USE FOR UNKNOWN INDICATION
  18. MOTRIN [Concomitant]
     Indication: DRUG USE FOR UNKNOWN INDICATION
  19. TYLENOL (CAPLET) [Concomitant]
     Indication: DRUG USE FOR UNKNOWN INDICATION
  20. LORTAB [Concomitant]
     Indication: DRUG USE FOR UNKNOWN INDICATION
  21. IMODIUM [Concomitant]
     Indication: DRUG USE FOR UNKNOWN INDICATION
  22. LOMOTIL [Concomitant]
     Indication: DRUG USE FOR UNKNOWN INDICATION
  23. PHENERGAN HCL [Concomitant]
     Indication: DRUG USE FOR UNKNOWN INDICATION
  24. ATIVAN [Concomitant]
     Indication: DRUG USE FOR UNKNOWN INDICATION
  25. AMBIEN [Concomitant]
     Indication: DRUG USE FOR UNKNOWN INDICATION
  26. CLEOCIN T GEL [Concomitant]
     Indication: DRUG USE FOR UNKNOWN INDICATION

REACTIONS (1)
  - MUCOSAL INFLAMMATION [None]
